FAERS Safety Report 4969577-1 (Version None)
Quarter: 2006Q1

REPORT INFORMATION
  Report Type: 
  Country: None (occurrence: None)
  Receive Date: 20060127
  Receipt Date: 20050120
  Transmission Date: 20060701
  Serious: Yes (Other)
  Sender: FDA-Public Use
  Company Number: 04-11-1622

PATIENT
  Age: 30 Year
  Sex: Male
  Weight: 85.2762 kg

DRUGS (2)
  1. CLOZAPINE [Suspect]
     Indication: SCHIZOAFFECTIVE DISORDER
     Dosage: 300MG QHS, ORAL
     Route: 048
     Dates: start: 20040927, end: 20041028
  2. RISPERDAL [Concomitant]

REACTIONS (1)
  - AGRANULOCYTOSIS [None]
